FAERS Safety Report 8836542 (Version 1)
Quarter: 2012Q4

REPORT INFORMATION
  Report Type: Spontaneous
  Country: US (occurrence: None)
  Receive Date: 20121009
  Receipt Date: 20121009
  Transmission Date: 20130627
  Serious: Yes (Other)
  Sender: FDA-Public Use
  Company Number: DSU-2012-07895

PATIENT

DRUGS (1)
  1. WELCHOL [Suspect]
     Indication: HYPERCHOLESTEROLEMIA
     Dosage: 3.75 gm (3.75 gm, QD), Per Oral
     Route: 048

REACTIONS (1)
  - Cholelithiasis [None]
